FAERS Safety Report 8970906 (Version 1)
Quarter: 2012Q4

REPORT INFORMATION
  Report Type: 
  Country: SE (occurrence: SE)
  Receive Date: 20121218
  Receipt Date: 20121218
  Transmission Date: 20130627
  Serious: Yes (Hospitalization)
  Sender: FDA-Public Use
  Company Number: SE-PFIZER INC-2012317223

PATIENT
  Age: 31 Year
  Sex: Female
  Weight: 67 kg

DRUGS (4)
  1. GENOTROPIN [Suspect]
     Dosage: 0.2 mg, 1x/day,7 injections/week
     Route: 058
     Dates: start: 20110215
  2. OXYMETAZOLINE [Concomitant]
     Indication: ALLERGY
     Dosage: UNK
     Dates: start: 19930101
  3. LORATADINE [Concomitant]
     Indication: ALLERGY
     Dosage: UNK
     Dates: start: 19980101
  4. KEPPRA [Concomitant]
     Indication: EPILEPSY
     Dosage: UNK
     Dates: start: 20111004

REACTIONS (1)
  - Liver disorder [Unknown]
